FAERS Safety Report 12676215 (Version 1)
Quarter: 2016Q3

REPORT INFORMATION
  Report Type: Report from Study
  Country: US (occurrence: US)
  Receive Date: 20160823
  Receipt Date: 20160823
  Transmission Date: 20161109
  Serious: Yes (Other)
  Sender: FDA-Public Use
  Company Number: US-AMGEN-USASL2016107904

PATIENT
  Age: 52 Year
  Sex: Female

DRUGS (1)
  1. REPATHA [Suspect]
     Active Substance: EVOLOCUMAB
     Indication: TYPE IIA HYPERLIPIDAEMIA
     Dosage: 140 UNKNOWN, Q2WK
     Route: 065
     Dates: start: 201606

REACTIONS (9)
  - Abdominal distension [Unknown]
  - Fatigue [Unknown]
  - Back pain [Unknown]
  - Nephrolithiasis [Unknown]
  - Myalgia [Unknown]
  - Urine abnormality [Unknown]
  - Influenza [Recovering/Resolving]
  - Pain [Unknown]
  - Oropharyngeal pain [Unknown]

NARRATIVE: CASE EVENT DATE: 2016
